FAERS Safety Report 8777830 (Version 1)
Quarter: 2012Q4

REPORT INFORMATION
  Report Type: 
  Country: FR (occurrence: FR)
  Receive Date: 20120911
  Receipt Date: 20120911
  Transmission Date: 20130627
  Serious: Yes (Hospitalization)
  Sender: FDA-Public Use
  Company Number: PHHY2012FR078024

PATIENT
  Age: 73 Year
  Sex: Male

DRUGS (10)
  1. COTAREG [Suspect]
     Indication: HYPERTENSION
     Dosage: 1 DF, QD
  2. SERTRALINE [Concomitant]
     Indication: DEPRESSION
     Dosage: 50 mg, QD
     Route: 048
  3. CLOZAPINE [Concomitant]
     Dosage: 25 mg, BID
     Route: 048
  4. TEMESTA [Concomitant]
     Indication: ANXIETY
     Dosage: 2.5 mg, UNK
     Route: 048
  5. KARDEGIC [Concomitant]
     Indication: ATHEROSCLEROSIS PROPHYLAXIS
     Dosage: 75 mg, QD
  6. OMEPRAZOLE [Concomitant]
     Indication: ULCER
     Dosage: 10 mg, QD
     Route: 048
  7. MACROGOL [Concomitant]
     Indication: CONSTIPATION
     Dosage: 4000 OT, UNK
     Route: 048
  8. SIMVASTATIN [Concomitant]
     Indication: HYPERCHOLESTEROLAEMIA
     Dosage: 20 mg, QD
     Route: 048
  9. LYSANXIA [Concomitant]
     Indication: ANXIETY
     Dosage: UNK UKN, UNK
     Route: 048
  10. TAMSULOSIN [Concomitant]
     Indication: BENIGN PROSTATIC HYPERPLASIA
     Dosage: UNK UKN, UNK
     Route: 048

REACTIONS (6)
  - Anaemia [Unknown]
  - Intentional overdose [Unknown]
  - Renal failure [Recovering/Resolving]
  - Oesophageal ulcer [Unknown]
  - Dyspnoea [Unknown]
  - Blood pressure abnormal [Unknown]
